FAERS Safety Report 12709087 (Version 1)
Quarter: 2016Q3

REPORT INFORMATION
  Report Type: Spontaneous
  Country: US (occurrence: US)
  Receive Date: 20160901
  Receipt Date: 20160901
  Transmission Date: 20161109
  Serious: No
  Sender: FDA-Public Use
  Company Number: US-JAZZ-2016-US-008291

PATIENT
  Age: 36 Year
  Sex: Female

DRUGS (17)
  1. RESTASIS [Concomitant]
     Active Substance: CYCLOSPORINE
  2. ADVIL [Concomitant]
     Active Substance: IBUPROFEN
  3. PROGESTERONE. [Concomitant]
     Active Substance: PROGESTERONE
  4. TYLENOL EXTRA STRENGTH [Concomitant]
     Active Substance: ACETAMINOPHEN
  5. BIOTIN [Concomitant]
     Active Substance: BIOTIN
  6. EVAMIST [Concomitant]
     Active Substance: ESTRADIOL
  7. GLUCOSAMINE [Concomitant]
     Active Substance: GLUCOSAMINE
  8. XYREM [Suspect]
     Active Substance: SODIUM OXYBATE
     Indication: CATAPLEXY
     Dosage: 1.5 G, BID
     Route: 048
     Dates: start: 2016, end: 2016
  9. FISH OIL [Suspect]
     Active Substance: FISH OIL
     Indication: PRODUCT USED FOR UNKNOWN INDICATION
     Dosage: UNK
     Dates: end: 2016
  10. GABAPENTIN. [Concomitant]
     Active Substance: GABAPENTIN
  11. TRAMADOL HCL [Concomitant]
     Active Substance: TRAMADOL HYDROCHLORIDE
  12. ZOLOFT [Concomitant]
     Active Substance: SERTRALINE HYDROCHLORIDE
  13. XYREM [Suspect]
     Active Substance: SODIUM OXYBATE
     Indication: NARCOLEPSY
     Dosage: 2.25 G, BID
     Route: 048
     Dates: start: 201604, end: 2016
  14. CLINDAMYCIN/BENZOYL PEROXIDE [Concomitant]
  15. MULTIVITAMIN [Concomitant]
     Active Substance: VITAMINS
  16. VITAMIN B COMPLEX [Concomitant]
     Active Substance: CYANOCOBALAMIN\DEXPANTHENOL\NIACINAMIDE\PYRIDOXINE HYDROCHLORIDE\RIBOFLAVIN 5^-PHOSPHATE SODIUM\THIAMINE HYDROCHLORIDE\VITAMIN B COMPLEX
  17. ALLEGRA-D [Concomitant]
     Active Substance: FEXOFENADINE\PSEUDOEPHEDRINE

REACTIONS (7)
  - Palpitations [Recovered/Resolved]
  - Hangover [Not Recovered/Not Resolved]
  - Dry eye [Not Recovered/Not Resolved]
  - Dry mouth [Not Recovered/Not Resolved]
  - Nausea [Unknown]
  - Somnolence [Not Recovered/Not Resolved]
  - Unevaluable event [Unknown]

NARRATIVE: CASE EVENT DATE: 201605
